FAERS Safety Report 4748918-4 (Version None)
Quarter: 2005Q3

REPORT INFORMATION
  Report Type: 
  Country: None (occurrence: None)
  Receive Date: 20050819
  Receipt Date: 20050810
  Transmission Date: 20060218
  Serious: Yes (Hospitalization)
  Sender: FDA-Public Use
  Company Number: PHEH2005US08891

PATIENT
  Age: 79 Year
  Sex: Female

DRUGS (1)
  1. FEMARA [Suspect]
     Dosage: 2.5 MG, UNK
     Route: 048
     Dates: start: 20050201

REACTIONS (9)
  - CELLULITIS [None]
  - CHILLS [None]
  - DRUG HYPERSENSITIVITY [None]
  - FATIGUE [None]
  - IMPAIRED HEALING [None]
  - LYMPHANGITIS [None]
  - OEDEMA PERIPHERAL [None]
  - PYREXIA [None]
  - WOUND SECRETION [None]
